FAERS Safety Report 26062074 (Version 1)
Quarter: 2025Q4

REPORT INFORMATION
  Report Type: Spontaneous
  Country: US (occurrence: US)
  Receive Date: 20251119
  Receipt Date: 20251119
  Transmission Date: 20260118
  Serious: No
  Sender: INNOGENIX, LLC
  Company Number: US-Innogenix, LLC-2188843

PATIENT

DRUGS (1)
  1. PROPRANOLOL HYDROCHLORIDE [Suspect]
     Active Substance: PROPRANOLOL HYDROCHLORIDE
     Indication: Atrial fibrillation

REACTIONS (2)
  - Heart rate increased [Unknown]
  - Dyspnoea [Unknown]
